FAERS Safety Report 14845811 (Version 1)
Quarter: 2018Q2

REPORT INFORMATION
  Report Type: Spontaneous
  Country: US (occurrence: US)
  Receive Date: 20180504
  Receipt Date: 20180504
  Transmission Date: 20180711
  Serious: No
  Sender: FDA-Public Use
  Company Number: US-ASTRAZENECA-2018SE55104

PATIENT
  Age: 83 Year
  Sex: Female

DRUGS (1)
  1. SEROQUEL [Suspect]
     Active Substance: QUETIAPINE FUMARATE
     Indication: PRODUCT USED FOR UNKNOWN INDICATION
     Route: 048

REACTIONS (6)
  - Irritability [Unknown]
  - Off label use [Unknown]
  - Confusional state [Unknown]
  - Feeling abnormal [Unknown]
  - Aggression [Unknown]
  - Underdose [Unknown]
